FAERS Safety Report 9584657 (Version 2)
Quarter: 2013Q4

REPORT INFORMATION
  Report Type: Spontaneous
  Country: US (occurrence: US)
  Receive Date: 20131002
  Receipt Date: 20131002
  Transmission Date: 20140711
  Serious: No
  Sender: FDA-Public Use
  Company Number: US-AMGEN-USASP2013053183

PATIENT
  Age: 37 Year
  Sex: Female
  Weight: 86.8 kg

DRUGS (8)
  1. ENBREL [Suspect]
     Indication: RHEUMATOID ARTHRITIS
     Dosage: 50 MG, QWK
     Route: 058
     Dates: start: 20130508
  2. TRAMADOL [Concomitant]
     Indication: RHEUMATOID ARTHRITIS
     Dosage: 50 MG, AS NECESSARY
     Route: 048
     Dates: start: 20130717
  3. TIZANIDINE [Concomitant]
     Dosage: 4 MG, AS NECESSARY
     Route: 048
     Dates: start: 20130506
  4. PREDNISONE [Concomitant]
     Indication: RHEUMATOID ARTHRITIS
     Dosage: 5 MG, AS NECESSARY
     Route: 048
     Dates: start: 20121212
  5. SYNTHROID [Concomitant]
     Indication: HYPOTHYROIDISM
     Dosage: 75 MG, QD
     Route: 048
  6. PILOCARPIN [Concomitant]
     Indication: SJOGREN^S SYNDROME
     Dosage: 5 MG, AS NECESSARY
     Route: 048
     Dates: start: 20121212
  7. CETRIZINE [Concomitant]
     Indication: HYPERSENSITIVITY
     Dosage: 10 MG, AS NECESSARY
     Route: 048
     Dates: start: 20121212
  8. LEFLUNOMIDE [Concomitant]
     Indication: RHEUMATOID ARTHRITIS
     Dosage: 20 MG, QD
     Route: 048
     Dates: start: 20111201

REACTIONS (2)
  - Neutropenia [Recovered/Resolved]
  - Injection site pain [Not Recovered/Not Resolved]
